FAERS Safety Report 4619104-3 (Version None)
Quarter: 2005Q1

REPORT INFORMATION
  Report Type: 
  Country: None (occurrence: None)
  Receive Date: 20050317
  Receipt Date: 20050317
  Transmission Date: 20050727
  Serious: No
  Sender: FDA-Public Use
  Company Number: None

PATIENT
  Age: 49 Year
  Sex: Male

DRUGS (3)
  1. OLANZAPINE [Suspect]
     Indication: SCHIZOPHRENIA
     Dates: start: 20040110, end: 20041103
  2. MIRTAZAPINE [Concomitant]
  3. MECLIZINE [Concomitant]

REACTIONS (5)
  - CONFUSIONAL STATE [None]
  - DIABETES MELLITUS [None]
  - DIABETIC KETOACIDOSIS [None]
  - POLYDIPSIA [None]
  - POLYURIA [None]
